FAERS Safety Report 14319766 (Version 2)
Quarter: 2018Q1

REPORT INFORMATION
  Report Type: Spontaneous
  Country: NL (occurrence: NL)
  Receive Date: 20171222
  Receipt Date: 20180109
  Transmission Date: 20180509
  Serious: Yes (Hospitalization)
  Sender: FDA-Public Use
  Company Number: NL-MYLANLABS-2017M1080996

PATIENT
  Age: 40 Year
  Sex: Male
  Weight: 104 kg

DRUGS (6)
  1. OXYCODON [Interacting]
     Active Substance: OXYCODONE
     Indication: PROCEDURAL PAIN
     Dosage: FOUR TIMES A DAY IF NECESSARY
  2. DULOXETINE. [Concomitant]
     Active Substance: DULOXETINE
     Indication: PRODUCT USED FOR UNKNOWN INDICATION
     Dosage: TWO A DAY
  3. OXYCODON [Interacting]
     Active Substance: OXYCODONE
     Indication: PROCEDURAL PAIN
     Dosage: TO   IF NECESSARY RETARD 10 MG TWO TIMES A DAY
  4. PROPRANOL [Concomitant]
     Active Substance: PROPRANOLOL HYDROCHLORIDE
     Indication: PRODUCT USED FOR UNKNOWN INDICATION
     Dosage: 40 MG, TID
  5. GABAPENTIN. [Suspect]
     Active Substance: GABAPENTIN
     Indication: NEUROPATHY PERIPHERAL
     Dosage: THREE TIMES A DAY TWO CAPSULES
     Dates: start: 20160101
  6. METHLFENIDAAT HCL [Concomitant]
     Indication: PRODUCT USED FOR UNKNOWN INDICATION
     Dosage: 10 MG, TID

REACTIONS (5)
  - Muscle spasms [Recovering/Resolving]
  - Confusional state [Recovering/Resolving]
  - Trismus [Recovering/Resolving]
  - Drug interaction [Unknown]
  - Visual impairment [Recovering/Resolving]

NARRATIVE: CASE EVENT DATE: 20171106
